FAERS Safety Report 7956946-0 (Version None)
Quarter: 2011Q4

REPORT INFORMATION
  Report Type: 
  Country: None (occurrence: None)
  Receive Date: 20111205
  Receipt Date: 20111205
  Transmission Date: 20120403
  Serious: Yes (Other)
  Sender: FDA-Public Use
  Company Number: None

PATIENT
  Age: 40 Year
  Sex: Male
  Weight: 88.45 kg

DRUGS (1)
  1. SEROQUEL [Suspect]
     Indication: INSOMNIA
     Dosage: 300 MG
     Route: 048

REACTIONS (6)
  - PARALYSIS [None]
  - OBSESSIVE-COMPULSIVE DISORDER [None]
  - INSOMNIA [None]
  - ACTIVITIES OF DAILY LIVING IMPAIRED [None]
  - MUSCLE TWITCHING [None]
  - CEREBRAL VASOCONSTRICTION [None]
